FAERS Safety Report 4948409-1 (Version None)
Quarter: 2006Q1

REPORT INFORMATION
  Report Type: 
  Country: None (occurrence: None)
  Receive Date: 20060313
  Receipt Date: 20060227
  Transmission Date: 20060701
  Serious: Yes (Disabling)
  Sender: FDA-Public Use
  Company Number: SUS1-2006-00090

PATIENT
  Age: 22 Year
  Sex: Male

DRUGS (4)
  1. PENTASA [Suspect]
     Indication: COLITIS ULCERATIVE
     Dosage: SEE IMAGE
     Route: 048
     Dates: start: 20041016, end: 20051228
  2. PENTASA [Suspect]
     Indication: COLITIS ULCERATIVE
     Dosage: SEE IMAGE
     Route: 048
     Dates: start: 20060104, end: 20060117
  3. PREDNISOLONE SODIUM PHOSPHATE (PREDNISOLONE SODIUM PHOSPHATE) [Concomitant]
  4. URSODIOL [Concomitant]

REACTIONS (3)
  - CRYPTOGENIC ORGANIZING PNEUMONIA [None]
  - LYMPHOCYTE STIMULATION TEST POSITIVE [None]
  - WHITE BLOOD CELL COUNT DECREASED [None]
